FAERS Safety Report 16763415 (Version 7)
Quarter: 2020Q2

REPORT INFORMATION
  Report Type: Report from Study
  Country: CO (occurrence: CO)
  Receive Date: 20190902
  Receipt Date: 20200508
  Transmission Date: 20200713
  Serious: Yes (Hospitalization, Other)
  Sender: FDA-Public Use
  Company Number: CO-ACTELION-A-CH2019-193180

PATIENT
  Age: 50 Year
  Sex: Female
  Weight: 58 kg

DRUGS (8)
  1. OPSUMIT [Suspect]
     Active Substance: MACITENTAN
     Indication: PULMONARY ARTERIAL HYPERTENSION
     Dosage: 10 MG, QD
     Route: 048
     Dates: start: 20190612, end: 20190730
  2. OPSUMIT [Suspect]
     Active Substance: MACITENTAN
     Dosage: 10 MG, QD
     Route: 048
     Dates: start: 20190909, end: 201910
  3. OPSUMIT [Suspect]
     Active Substance: MACITENTAN
     Dosage: 10 MG, QD
     Route: 048
     Dates: start: 20190731, end: 201908
  4. RIOCIGUAT. [Concomitant]
     Active Substance: RIOCIGUAT
     Dosage: 2.5 MG, TID
     Route: 048
     Dates: start: 201907
  5. OPSUMIT [Suspect]
     Active Substance: MACITENTAN
     Dosage: 10 MG, QD
     Route: 048
     Dates: start: 20190712, end: 20190730
  6. OPSUMIT [Suspect]
     Active Substance: MACITENTAN
     Dosage: 10 MG, QD
     Route: 048
     Dates: start: 20191214, end: 202004
  7. OPSUMIT [Suspect]
     Active Substance: MACITENTAN
     Dosage: 10 MG, QD
     Route: 048
     Dates: start: 20200428
  8. OXYGEN. [Concomitant]
     Active Substance: OXYGEN

REACTIONS (27)
  - Fatigue [Not Recovered/Not Resolved]
  - General physical health deterioration [Not Recovered/Not Resolved]
  - Peripheral swelling [Recovering/Resolving]
  - Surgery [Unknown]
  - Pain [Recovering/Resolving]
  - Insomnia [Unknown]
  - Cardiac disorder [Not Recovered/Not Resolved]
  - Dyspnoea [Not Recovered/Not Resolved]
  - Dizziness [Unknown]
  - Chest discomfort [Not Recovered/Not Resolved]
  - Pericardial effusion [Not Recovered/Not Resolved]
  - Heart rate decreased [Not Recovered/Not Resolved]
  - Choking [Not Recovered/Not Resolved]
  - Walking disability [Not Recovered/Not Resolved]
  - Haemoptysis [Recovering/Resolving]
  - Abdominal discomfort [Recovering/Resolving]
  - Influenza [Recovering/Resolving]
  - Aortic aneurysm [Not Recovered/Not Resolved]
  - Swelling [Not Recovered/Not Resolved]
  - Hospitalisation [Recovering/Resolving]
  - Skin discolouration [Recovering/Resolving]
  - Decreased appetite [Recovering/Resolving]
  - Sleep disorder [Recovering/Resolving]
  - Lung disorder [Not Recovered/Not Resolved]
  - Agitation [Not Recovered/Not Resolved]
  - Cough [Recovering/Resolving]
  - Swelling face [Not Recovered/Not Resolved]

NARRATIVE: CASE EVENT DATE: 2019
